FAERS Safety Report 14955489 (Version 2)
Quarter: 2018Q2

REPORT INFORMATION
  Report Type: Spontaneous
  Country: JP (occurrence: JP)
  Receive Date: 20180531
  Receipt Date: 20180531
  Transmission Date: 20180711
  Serious: Yes (Death, Hospitalization, Other)
  Sender: FDA-Public Use
  Company Number: JP-ROCHE-2131467

PATIENT
  Age: 63 Year
  Sex: Female

DRUGS (6)
  1. HERCEPTIN [Suspect]
     Active Substance: TRASTUZUMAB
     Indication: BREAST CANCER
     Dosage: DOSAGE IS UNCERTAIN.
     Route: 041
     Dates: start: 2015
  2. PERJETA [Suspect]
     Active Substance: PERTUZUMAB
     Indication: BREAST CANCER
     Dosage: 420 MG/14ML
     Route: 041
     Dates: start: 2015
  3. KADCYLA [Suspect]
     Active Substance: ADO-TRASTUZUMAB EMTANSINE
     Indication: BREAST CANCER
     Route: 041
     Dates: start: 201607
  4. DOCETAXEL. [Concomitant]
     Active Substance: DOCETAXEL
  5. LAPATINIB [Concomitant]
     Active Substance: LAPATINIB
  6. XELODA [Suspect]
     Active Substance: CAPECITABINE
     Indication: BREAST CANCER
     Route: 048
     Dates: start: 201612

REACTIONS (4)
  - Interstitial lung disease [Recovering/Resolving]
  - Lymphangiosis carcinomatosa [Unknown]
  - Neoplasm progression [Unknown]
  - Breast cancer [Fatal]
